FAERS Safety Report 9073818 (Version 1)
Quarter: 2013Q1

REPORT INFORMATION
  Report Type: Spontaneous
  Country: US (occurrence: US)
  Receive Date: 20130129
  Receipt Date: 20130129
  Transmission Date: 20140127
  Serious: Yes (Other)
  Sender: FDA-Public Use
  Company Number: US-ELI_LILLY_AND_COMPANY-US201301008586

PATIENT
  Sex: Male

DRUGS (3)
  1. EFFIENT [Suspect]
     Indication: PERCUTANEOUS CORONARY INTERVENTION
     Dosage: 60 MG, UNK
  2. PLAVIX [Concomitant]
  3. ANGIOMAX [Concomitant]

REACTIONS (1)
  - Device occlusion [Unknown]
